FAERS Safety Report 11550257 (Version 2)
Quarter: 2015Q4

REPORT INFORMATION
  Report Type: Spontaneous
  Country: AU (occurrence: AU)
  Receive Date: 20150924
  Receipt Date: 20151008
  Transmission Date: 20160304
  Serious: Yes (Other)
  Sender: FDA-Public Use
  Company Number: AU-CONCORDIA PHARMACEUTICALS INC.-CO-ZN-AU-2015-041

PATIENT
  Sex: Male

DRUGS (16)
  1. ZANTAC [Suspect]
     Active Substance: RANITIDINE HYDROCHLORIDE
     Indication: PRODUCT USED FOR UNKNOWN INDICATION
     Route: 065
  2. AUGMENTIN [Suspect]
     Active Substance: AMOXICILLIN\CLAVULANATE POTASSIUM
     Indication: PRODUCT USED FOR UNKNOWN INDICATION
  3. FORXIGA [Concomitant]
     Active Substance: DAPAGLIFLOZIN
  4. NEXIUM HP7 [Concomitant]
     Active Substance: AMOXICILLIN\CLARITHROMYCIN\ESOMEPRAZOLE
  5. BECONASE AQ [Suspect]
     Active Substance: BECLOMETHASONE DIPROPIONATE MONOHYDRATE
     Indication: PRODUCT USED FOR UNKNOWN INDICATION
  6. FML EYE DROPS [Concomitant]
  7. VENTOLIN [Concomitant]
     Active Substance: ALBUTEROL SULFATE
  8. BRICANYL [Concomitant]
     Active Substance: TERBUTALINE SULFATE
  9. SERETIDE [Concomitant]
     Active Substance: FLUTICASONE FUROATE\SALMETEROL XINAFOATE
  10. PANADOL [Concomitant]
     Active Substance: ACETAMINOPHEN
  11. GLIMEPIRIDE. [Concomitant]
     Active Substance: GLIMEPIRIDE
  12. VALPAM [Concomitant]
  13. VITAMIN D [Concomitant]
     Active Substance: CHOLECALCIFEROL
  14. ZYDOL [Concomitant]
     Active Substance: TRAMADOL HYDROCHLORIDE
  15. NASONEX [Concomitant]
     Active Substance: MOMETASONE FUROATE
  16. LYRICA [Concomitant]
     Active Substance: PREGABALIN
     Dates: start: 20141128, end: 20150805

REACTIONS (4)
  - Diarrhoea [Unknown]
  - Nausea [Unknown]
  - Muscle spasms [Unknown]
  - Epistaxis [Unknown]
